FAERS Safety Report 9777569 (Version 1)
Quarter: 2013Q4

REPORT INFORMATION
  Report Type: Spontaneous
  Country: None (occurrence: GB)
  Receive Date: 20131222
  Receipt Date: 20131222
  Transmission Date: 20140711
  Serious: Yes (Disabling, Other)
  Sender: FDA-Public Use
  Company Number: GB-TEVA-452525ISR

PATIENT
  Sex: 0

DRUGS (1)
  1. AZILECT [Suspect]
     Indication: PRODUCT USED FOR UNKNOWN INDICATION
     Route: 065

REACTIONS (3)
  - Musculoskeletal stiffness [Unknown]
  - Abasia [Unknown]
  - Withdrawal syndrome [Unknown]
